FAERS Safety Report 15155777 (Version 1)
Quarter: 2018Q3

REPORT INFORMATION
  Report Type: Spontaneous
  Country: DE (occurrence: DE)
  Receive Date: 20180717
  Receipt Date: 20180717
  Transmission Date: 20181010
  Serious: Yes (Hospitalization)
  Sender: FDA-Public Use
  Company Number: DE-US WORLDMEDS, LLC-STA_00018910

PATIENT
  Sex: Female

DRUGS (6)
  1. APOMORPHINE HYDROCHLORIDE [Suspect]
     Active Substance: APOMORPHINE HYDROCHLORIDE
     Indication: PARKINSONISM
     Dosage: 5 MG/HOUR
     Dates: start: 20100906, end: 20100909
  2. SEROQUEL [Concomitant]
     Active Substance: QUETIAPINE FUMARATE
     Indication: HALLUCINATION
     Dosage: 50MG / 24 HOURS
  3. ISICOM 100 [Concomitant]
     Indication: PARKINSONISM
     Dosage: 150 MG / 3 HOURS
  4. PK?MERZ [Concomitant]
     Active Substance: AMANTADINE
     Indication: PARKINSONISM
     Dosage: 200 MG / 3 HOURS
  5. EXELON [Concomitant]
     Active Substance: RIVASTIGMINE TARTRATE
     Indication: DEMENTIA
     Dosage: 6MG / 12 HOURS
  6. TASMAR [Concomitant]
     Active Substance: TOLCAPONE
     Indication: PARKINSONISM
     Dosage: 200MG / 12 HORUS

REACTIONS (2)
  - Abdominal wall haematoma [Unknown]
  - Haemoglobin decreased [Unknown]
